FAERS Safety Report 21222699 (Version 1)
Quarter: 2022Q3

REPORT INFORMATION
  Report Type: Spontaneous
  Country: CN (occurrence: CN)
  Receive Date: 20220817
  Receipt Date: 20220817
  Transmission Date: 20221026
  Serious: Yes (Disabling, Other)
  Sender: FDA-Public Use
  Company Number: CN-TAKEDA-2022TUS055996

PATIENT
  Age: 52 Year
  Sex: Female
  Weight: 61 kg

DRUGS (9)
  1. IXAZOMIB [Suspect]
     Active Substance: IXAZOMIB
     Indication: Plasma cell myeloma
     Dosage: 4 MILLIGRAM, QD
     Route: 048
     Dates: start: 20220608
  2. DARATUMUMAB [Suspect]
     Active Substance: DARATUMUMAB
     Indication: Plasma cell myeloma
     Dosage: 100 MILLIGRAM, BID
     Route: 042
     Dates: start: 20220603, end: 20220603
  3. DARATUMUMAB [Suspect]
     Active Substance: DARATUMUMAB
     Dosage: 400 MILLIGRAM, BID
     Route: 042
     Dates: start: 20220603, end: 20220603
  4. DARATUMUMAB [Suspect]
     Active Substance: DARATUMUMAB
     Dosage: 100 MILLIGRAM, BID
     Route: 042
     Dates: start: 20220610, end: 20220610
  5. DARATUMUMAB [Suspect]
     Active Substance: DARATUMUMAB
     Dosage: 400 MILLIGRAM, BID
     Route: 042
     Dates: start: 20220610
  6. SODIUM CHLORIDE [Suspect]
     Active Substance: SODIUM CHLORIDE
     Indication: Plasma cell myeloma
     Dosage: 100 MILLILITER, BID
     Route: 042
     Dates: start: 20220603, end: 20220603
  7. SODIUM CHLORIDE [Suspect]
     Active Substance: SODIUM CHLORIDE
     Dosage: 400 MILLILITER, BID
     Route: 042
     Dates: start: 20220603, end: 20220603
  8. SODIUM CHLORIDE [Suspect]
     Active Substance: SODIUM CHLORIDE
     Dosage: 100 MILLILITER, BID
     Route: 042
     Dates: start: 20220610, end: 20220610
  9. SODIUM CHLORIDE [Suspect]
     Active Substance: SODIUM CHLORIDE
     Dosage: 400 MILLILITER, BID
     Route: 042
     Dates: start: 20220610

REACTIONS (3)
  - Granulocyte count decreased [Recovering/Resolving]
  - White blood cell count decreased [Recovering/Resolving]
  - Platelet count decreased [Recovering/Resolving]

NARRATIVE: CASE EVENT DATE: 20220629
